FAERS Safety Report 13735515 (Version 3)
Quarter: 2017Q3

REPORT INFORMATION
  Report Type: Spontaneous
  Country: US (occurrence: US)
  Receive Date: 20170710
  Receipt Date: 20170719
  Transmission Date: 20171127
  Serious: Yes (Death)
  Sender: FDA-Public Use
  Company Number: US-PFIZER INC-2017287277

PATIENT
  Age: 84 Year
  Sex: Female
  Weight: 50.3 kg

DRUGS (4)
  1. TORISEL [Suspect]
     Active Substance: TEMSIROLIMUS
     Indication: UTERINE CANCER
     Dosage: 25 MG, WEEKLY
     Route: 042
     Dates: end: 20170524
  2. TORISEL [Suspect]
     Active Substance: TEMSIROLIMUS
     Indication: METASTASES TO LIVER
  3. TORISEL [Suspect]
     Active Substance: TEMSIROLIMUS
     Indication: CHOLANGIOCARCINOMA
  4. TORISEL [Suspect]
     Active Substance: TEMSIROLIMUS
     Indication: LUNG NEOPLASM MALIGNANT

REACTIONS (2)
  - Product use in unapproved indication [Unknown]
  - Neoplasm progression [Fatal]

NARRATIVE: CASE EVENT DATE: 201706
